FAERS Safety Report 7951785-9 (Version None)
Quarter: 2011Q4

REPORT INFORMATION
  Report Type: 
  Country: None (occurrence: None)
  Receive Date: 20111201
  Receipt Date: 20111125
  Transmission Date: 20120403
  Serious: Yes (Hospitalization)
  Sender: FDA-Public Use
  Company Number: NL-B.I. PHARMACEUTICALS,INC./RIDGEFIELD-2011-NL-00297NL

PATIENT
  Sex: Male
  Weight: 72 kg

DRUGS (8)
  1. FUROSEMIDE [Concomitant]
     Indication: CARDIAC FAILURE
     Dosage: 40 MG
     Route: 048
  2. TEMAZEPAM [Concomitant]
     Indication: SLEEP DISORDER
     Dosage: 10 MG
     Route: 048
  3. PRADAXA [Suspect]
     Indication: ANTICOAGULANT THERAPY
     Dosage: 220 MG
     Dates: start: 20091009, end: 20110624
  4. STRUMAZOL [Concomitant]
     Indication: HYPOTHYROIDISM
     Dosage: 10 MG
     Route: 048
  5. FORADIL [Concomitant]
     Route: 055
  6. SPIRIVA [Suspect]
     Route: 055
  7. ISOSORBIDEMONONITRAAT [Concomitant]
     Indication: ANGINA PECTORIS
     Dosage: 20 MG
     Route: 048
  8. SPIRONOLACTONE [Concomitant]
     Indication: CARDIAC FAILURE
     Dosage: 25 MG
     Route: 048

REACTIONS (1)
  - ANAEMIA [None]
